FAERS Safety Report 10453836 (Version 1)
Quarter: 2014Q3

REPORT INFORMATION
  Report Type: Spontaneous
  Country: US (occurrence: US)
  Receive Date: 20140915
  Receipt Date: 20140915
  Transmission Date: 20150326
  Serious: Yes (Death)
  Sender: FDA-Public Use
  Company Number: US-BRISTOL-MYERS SQUIBB COMPANY-21305669

PATIENT
  Age: 73 Year
  Sex: Male

DRUGS (2)
  1. ELIQUIS [Suspect]
     Active Substance: APIXABAN
  2. ASPIRIN. [Suspect]
     Active Substance: ASPIRIN

REACTIONS (1)
  - Haemorrhage intracranial [Fatal]
